FAERS Safety Report 8530081-5 (Version None)
Quarter: 2012Q3

REPORT INFORMATION
  Report Type: 
  Country: None (occurrence: None)
  Receive Date: 20120723
  Receipt Date: 20120711
  Transmission Date: 20120928
  Serious: Yes (Other)
  Sender: FDA-Public Use
  Company Number: US-BAYER-2012-071190

PATIENT

DRUGS (1)
  1. ALEVE (CAPLET) [Suspect]
     Route: 048

REACTIONS (5)
  - CARBOHYDRATE METABOLISM DISORDER [None]
  - GASTROINTESTINAL DISORDER [None]
  - CROHN'S DISEASE [None]
  - UNEVALUABLE EVENT [None]
  - DRUG INTOLERANCE [None]
